FAERS Safety Report 10564690 (Version 2)
Quarter: 2014Q4

REPORT INFORMATION
  Report Type: Spontaneous
  Country: GB (occurrence: GB)
  Receive Date: 20141104
  Receipt Date: 20141106
  Transmission Date: 20150529
  Serious: Yes (Life-Threatening, Hospitalization, Other)
  Sender: FDA-Public Use
  Company Number: GB-ASTRAZENECA-2014SE82916

PATIENT
  Age: 65 Year
  Sex: Female

DRUGS (8)
  1. CALCICHEW D3 [Concomitant]
     Active Substance: CALCIUM\CHOLECALCIFEROL
  2. LACRI-LUBE [Concomitant]
  3. IBUPROFEN. [Concomitant]
     Active Substance: IBUPROFEN
  4. PARACETAMOL [Concomitant]
     Active Substance: ACETAMINOPHEN
     Indication: ANALGESIC THERAPY
  5. YOGARAJ GUGGULU [Concomitant]
     Route: 048
     Dates: start: 201310
  6. GLYCERYL TRINITRATE [Concomitant]
     Active Substance: NITROGLYCERIN
  7. OMEPRAZOLE. [Suspect]
     Active Substance: OMEPRAZOLE
     Indication: DYSPEPSIA
     Route: 048
     Dates: start: 20141014, end: 20141017
  8. CETIRIZINE [Concomitant]
     Active Substance: CETIRIZINE HYDROCHLORIDE

REACTIONS (5)
  - Dysphagia [Recovered/Resolved]
  - Hypersensitivity [Unknown]
  - Drooling [Unknown]
  - Dyspnoea [Recovered/Resolved]
  - Angioedema [Recovered/Resolved]

NARRATIVE: CASE EVENT DATE: 20141017
